FAERS Safety Report 6114248-1 (Version None)
Quarter: 2009Q1

REPORT INFORMATION
  Report Type: 
  Country: None (occurrence: None)
  Receive Date: 20090312
  Receipt Date: 20080908
  Transmission Date: 20090719
  Serious: No
  Sender: FDA-Public Use
  Company Number: US-ABBOTT-08P-163-0474838-00

PATIENT
  Sex: Male
  Weight: 106.4 kg

DRUGS (2)
  1. DEPAKOTE [Suspect]
     Indication: BIPOLAR DISORDER
     Route: 048
     Dates: start: 19960101, end: 20080601
  2. DEPAKOTE [Suspect]
     Route: 048
     Dates: start: 20080908

REACTIONS (1)
  - DEPRESSION [None]
